FAERS Safety Report 4589251-3 (Version None)
Quarter: 2005Q1

REPORT INFORMATION
  Report Type: 
  Country: None (occurrence: None)
  Receive Date: 20050216
  Receipt Date: 20050201
  Transmission Date: 20050727
  Serious: Yes (Other)
  Sender: FDA-Public Use
  Company Number: 211992

PATIENT
  Age: 85 Year
  Sex: Male

DRUGS (4)
  1. RITUXAN [Suspect]
     Indication: LYMPHOMA
     Dosage: 375 MG/M2, 1/WEEK X 4 WEEKS
     Dates: start: 20041203, end: 20041227
  2. GLYBURIDE [Concomitant]
  3. LISINOPRIL [Concomitant]
  4. ATENOLOL [Concomitant]

REACTIONS (1)
  - EVAN'S SYNDROME [None]
